FAERS Safety Report 6616544-8 (Version None)
Quarter: 2010Q1

REPORT INFORMATION
  Report Type: 
  Country: None (occurrence: None)
  Receive Date: 20100305
  Receipt Date: 20100222
  Transmission Date: 20100710
  Serious: Yes (Other)
  Sender: FDA-Public Use
  Company Number: US-PFIZER INC-2010023364

PATIENT
  Sex: Female

DRUGS (7)
  1. CHANTIX [Suspect]
     Indication: SMOKING CESSATION THERAPY
     Dosage: 0.5 MG, 1X/DAY
     Route: 048
     Dates: start: 20100215
  2. VALIUM [Concomitant]
  3. NEURONTIN [Concomitant]
  4. AMITRIPTYLINE [Concomitant]
  5. ALBUTEROL [Concomitant]
  6. DILAUDID [Concomitant]
  7. MEDROL [Concomitant]

REACTIONS (4)
  - DRUG INEFFECTIVE [None]
  - HEARING IMPAIRED [None]
  - MUSCLE TIGHTNESS [None]
  - NAUSEA [None]
